FAERS Safety Report 12431574 (Version 1)
Quarter: 2016Q2

REPORT INFORMATION
  Report Type: Spontaneous
  Country: US (occurrence: None)
  Receive Date: 20160602
  Receipt Date: 20160602
  Transmission Date: 20160815
  Serious: Yes (Hospitalization)
  Sender: FDA-Public Use
  Company Number: None

PATIENT
  Age: 70 Year
  Sex: Male
  Weight: 76.66 kg

DRUGS (17)
  1. ATORVASTATIN [Concomitant]
     Active Substance: ATORVASTATIN
  2. MAGNESIUM OXIDE. [Concomitant]
     Active Substance: MAGNESIUM OXIDE
  3. MULTIVITAMIN [Concomitant]
     Active Substance: VITAMINS
  4. CLOTRIMAZOLE AND BETAMETHASONE DIPROPIONATE [Concomitant]
     Active Substance: BETAMETHASONE\BETAMETHASONE DIPROPIONATE\CLOTRIMAZOLE
  5. GABAPENTIN. [Concomitant]
     Active Substance: GABAPENTIN
  6. SOFOSBUVIR 400MG GILEAD [Suspect]
     Active Substance: SOFOSBUVIR
     Indication: HEPATITIS C
     Route: 048
     Dates: start: 20160111, end: 20160404
  7. RIBAVIRIN. [Suspect]
     Active Substance: RIBAVIRIN
     Route: 048
  8. FUROSEMIDE. [Concomitant]
     Active Substance: FUROSEMIDE
  9. SPIRONOLACTONE. [Concomitant]
     Active Substance: SPIRONOLACTONE
  10. DACLATASVIR 60MG BMS [Suspect]
     Active Substance: DACLATASVIR
     Indication: HEPATITIS C
     Route: 048
     Dates: start: 20160111, end: 20160404
  11. INSULIN GLARGINE [Concomitant]
     Active Substance: INSULIN GLARGINE
  12. ASPIRIN. [Concomitant]
     Active Substance: ASPIRIN
  13. VITAMIN D3 [Concomitant]
     Active Substance: CHOLECALCIFEROL
  14. INSULIN ASPART [Concomitant]
     Active Substance: INSULIN ASPART
  15. DESONIDE. [Concomitant]
     Active Substance: DESONIDE
  16. LACTULOSE. [Concomitant]
     Active Substance: LACTULOSE
  17. RIFAXIMIN [Concomitant]
     Active Substance: RIFAXIMIN

REACTIONS (1)
  - Diabetes mellitus inadequate control [None]

NARRATIVE: CASE EVENT DATE: 20160303
